FAERS Safety Report 9096841 (Version 1)
Quarter: 2013Q1

REPORT INFORMATION
  Report Type: Report from Study
  Country: CA (occurrence: CA)
  Receive Date: 20130211
  Receipt Date: 20130211
  Transmission Date: 20140127
  Serious: Yes (Other)
  Sender: FDA-Public Use
  Company Number: CA-JNJFOC-20130200652

PATIENT
  Sex: Female
  Weight: 53.07 kg

DRUGS (2)
  1. REMICADE [Suspect]
     Indication: CROHN^S DISEASE
     Dosage: 7 VIALS
     Route: 042
  2. REMICADE [Suspect]
     Indication: CROHN^S DISEASE
     Dosage: 4 VIALS
     Route: 042

REACTIONS (4)
  - Rheumatoid arthritis [Not Recovered/Not Resolved]
  - Rash [Unknown]
  - Gastritis bacterial [Recovering/Resolving]
  - Diarrhoea [Recovering/Resolving]
